FAERS Safety Report 13340744 (Version 6)
Quarter: 2018Q2

REPORT INFORMATION
  Report Type: Report from Study
  Country: US (occurrence: US)
  Receive Date: 20170316
  Receipt Date: 20180622
  Transmission Date: 20180711
  Serious: No
  Sender: FDA-Public Use
  Company Number: PHEH2017US007629

PATIENT
  Age: 25 Year
  Sex: Female
  Weight: 72.56 kg

DRUGS (8)
  1. IRON [Concomitant]
     Active Substance: IRON
     Indication: PRODUCT USED FOR UNKNOWN INDICATION
     Dosage: 65 MG, UNK
     Route: 065
     Dates: start: 201703, end: 201705
  2. PNV [Concomitant]
     Indication: PRODUCT USED FOR UNKNOWN INDICATION
     Dosage: UNK (1ST, 2ND, 3RD TRIMESTER)
     Route: 065
     Dates: start: 20160909
  3. LOVENOX [Concomitant]
     Active Substance: ENOXAPARIN SODIUM
     Indication: FACTOR V LEIDEN MUTATION
     Dosage: 40 MG, UNK (1ST, 2ND, 3RD TRIMESTER)
     Route: 065
     Dates: start: 20160909, end: 20170427
  4. ASA [Concomitant]
     Active Substance: ASPIRIN
     Indication: FACTOR V LEIDEN MUTATION
     Dosage: 81 MG, UNK (1ST, 2ND, 3RD TRIMESTER)
     Route: 065
     Dates: start: 20160909, end: 201705
  5. FERROUS SULFATE. [Concomitant]
     Active Substance: FERROUS SULFATE
     Indication: ANAEMIA
     Dosage: 325 MG, UNK (1ST, 2ND, 3RD TRIMESTER)
     Route: 065
     Dates: start: 201703, end: 201705
  6. GILENYA [Suspect]
     Active Substance: FINGOLIMOD HYDROCHLORIDE
     Indication: RELAPSING-REMITTING MULTIPLE SCLEROSIS
     Dosage: 0.5 MG, QD
     Route: 048
     Dates: start: 201511, end: 201604
  7. HEPARIN [Concomitant]
     Active Substance: HEPARIN SODIUM
     Indication: FACTOR V LEIDEN MUTATION
     Dosage: 5000 U, UNK (3RD TRIMESTER)
     Route: 065
     Dates: start: 20170428, end: 201705
  8. ZOFRAN [Concomitant]
     Active Substance: ONDANSETRON HYDROCHLORIDE
     Indication: VOMITING
     Dosage: 4 MG, UNK (FORMULATION: ORAL DISINTEGRATING TABLET)
     Route: 048
     Dates: start: 20160916

REACTIONS (2)
  - Maternal exposure before pregnancy [Unknown]
  - Postmature baby [Unknown]

NARRATIVE: CASE EVENT DATE: 20170511
